FAERS Safety Report 9370974 (Version 1)
Quarter: 2013Q2

REPORT INFORMATION
  Report Type: Spontaneous
  Country: CH (occurrence: CH)
  Receive Date: 20130627
  Receipt Date: 20130627
  Transmission Date: 20140414
  Serious: Yes (Other)
  Sender: FDA-Public Use
  Company Number: CH-ROCHE-1241180

PATIENT
  Age: 84 Year
  Sex: Female

DRUGS (2)
  1. LUCENTIS [Suspect]
     Indication: AGE-RELATED MACULAR DEGENERATION
     Route: 050
     Dates: start: 20130522
  2. ASPIRIN [Concomitant]
     Route: 048

REACTIONS (4)
  - Vitritis [Recovering/Resolving]
  - Vitreous floaters [Recovering/Resolving]
  - Intraocular pressure increased [Unknown]
  - Vitreous disorder [Unknown]
